FAERS Safety Report 18657024 (Version 1)
Quarter: 2020Q4

REPORT INFORMATION
  Report Type: Spontaneous
  Country: US (occurrence: US)
  Receive Date: 20201224
  Receipt Date: 20201224
  Transmission Date: 20210114
  Serious: Yes (Death, Other)
  Sender: FDA-Public Use
  Company Number: US-009507513-2012USA008690

PATIENT
  Age: 53 Year
  Sex: Female

DRUGS (10)
  1. PRINIVIL [Suspect]
     Active Substance: LISINOPRIL
     Dosage: ROUTE: INGESTION
  2. LORAZEPAM. [Suspect]
     Active Substance: LORAZEPAM
     Dosage: ROUTE: INGESTION
  3. SUMATRIPTAN. [Suspect]
     Active Substance: SUMATRIPTAN
     Dosage: ROUTE: INGESTION
  4. PIOGLITAZONE. [Suspect]
     Active Substance: PIOGLITAZONE
     Dosage: ROUTE: INGESTION
  5. INSULIN [Suspect]
     Active Substance: INSULIN NOS
     Dosage: ROUTE: INGESTION
  6. ATORVASTATIN [Suspect]
     Active Substance: ATORVASTATIN
     Dosage: ROUTE: INGESTION
  7. GABAPENTIN. [Suspect]
     Active Substance: GABAPENTIN
     Dosage: ROUTE: INGESTION
  8. QUETIAPINE FUMARATE. [Suspect]
     Active Substance: QUETIAPINE FUMARATE
     Dosage: ROUTE: INGESTION
  9. CYCLOBENZAPRINE HYDROCHLORIDE. [Suspect]
     Active Substance: CYCLOBENZAPRINE HYDROCHLORIDE
     Dosage: ROUTE: INGESTION
  10. BUPROPION. [Suspect]
     Active Substance: BUPROPION
     Dosage: ROUTE: INGESTION

REACTIONS (1)
  - Suspected suicide [Fatal]
